FAERS Safety Report 22022069 (Version 1)
Quarter: 2023Q1

REPORT INFORMATION
  Report Type: Spontaneous
  Country: FR (occurrence: FR)
  Receive Date: 20230222
  Receipt Date: 20230222
  Transmission Date: 20230417
  Serious: Yes (Other)
  Sender: FDA-Public Use
  Company Number: None

PATIENT
  Age: 73 Year
  Sex: Female
  Weight: 87 kg

DRUGS (6)
  1. PROPRANOLOL [Suspect]
     Active Substance: PROPRANOLOL HYDROCHLORIDE
     Indication: Varices oesophageal
     Route: 065
     Dates: start: 2014
  2. COMIRNATY [Suspect]
     Active Substance: TOZINAMERAN
     Indication: COVID-19 immunisation
     Dosage: R2, COMIRNATY 30 MICROGRAMS/DOSE DISPERSION FOR INJECTION. MRNA (MODIFIED NUCLEOSIDE) VACCINE AGAINS
     Route: 065
     Dates: start: 20220713, end: 20220713
  3. FLUINDIONE [Suspect]
     Active Substance: FLUINDIONE
     Indication: Prophylaxis
     Route: 065
     Dates: start: 2012, end: 20221202
  4. HYDREA [Suspect]
     Active Substance: HYDROXYUREA
     Indication: Polycythaemia vera
     Dosage: SUSPENSION OF PROCESSING FROM 04/11/2022 TO 02/12/2022,
     Dates: start: 2012
  5. POTASSIUM CHLORIDE [Concomitant]
     Active Substance: POTASSIUM CHLORIDE
     Indication: Mineral supplementation
  6. FUROSEMIDE [Concomitant]
     Active Substance: FUROSEMIDE
     Indication: Oedema peripheral

REACTIONS (1)
  - Neuralgia [Not Recovered/Not Resolved]

NARRATIVE: CASE EVENT DATE: 20220801
